FAERS Safety Report 6405948-4 (Version None)
Quarter: 2009Q4

REPORT INFORMATION
  Report Type: 
  Country: None (occurrence: None)
  Receive Date: 20091019
  Receipt Date: 20091007
  Transmission Date: 20100525
  Serious: Yes (Other)
  Sender: FDA-Public Use
  Company Number: US-ELI_LILLY_AND_COMPANY-US200910002814

PATIENT
  Age: 81 Year
  Sex: Female

DRUGS (3)
  1. FORTEO [Suspect]
     Indication: OSTEOPOROSIS
     Dates: start: 20090401
  2. EVISTA [Suspect]
  3. SYNTHROID [Concomitant]

REACTIONS (2)
  - CATARACT [None]
  - SQUAMOUS CELL CARCINOMA [None]
